FAERS Safety Report 18558906 (Version 1)
Quarter: 2020Q4

REPORT INFORMATION
  Report Type: Report from Study
  Country: US (occurrence: US)
  Receive Date: 20201130
  Receipt Date: 20201130
  Transmission Date: 20210114
  Serious: Yes (Death)
  Sender: FDA-Public Use
  Company Number: US-ASTRAZENECA-2020SF57571

PATIENT
  Age: 21247 Day
  Sex: Female

DRUGS (2)
  1. HUMULIN R U-500 [Concomitant]
     Active Substance: INSULIN HUMAN
  2. FASENRA [Suspect]
     Active Substance: BENRALIZUMAB
     Indication: IMMUNODEFICIENCY COMMON VARIABLE
     Dosage: 30 MG, EVERY 56 DAYS
     Route: 058
     Dates: start: 20201123

REACTIONS (1)
  - Death [Fatal]

NARRATIVE: CASE EVENT DATE: 20201123
